FAERS Safety Report 5027161-8 (Version None)
Quarter: 2006Q2

REPORT INFORMATION
  Report Type: 
  Country: None (occurrence: None)
  Receive Date: 20060501
  Receipt Date: 20060123
  Transmission Date: 20061013
  Serious: No
  Sender: FDA-Public Use
  Company Number: 2006PV007524

PATIENT
  Age: 79 Year
  Sex: Female
  Weight: 90.7194 kg

DRUGS (2)
  1. SYMLIN INJECTION (0.6 MG/ML) [Suspect]
     Indication: DIABETES MELLITUS NON-INSULIN-DEPENDENT
     Dosage: 60 MCG; TID; SC
     Route: 058
     Dates: start: 20060121
  2. HUMALOG [Concomitant]

REACTIONS (1)
  - DIARRHOEA [None]
